FAERS Safety Report 4464355-4 (Version None)
Quarter: 2004Q4

REPORT INFORMATION
  Report Type: 
  Country: None (occurrence: None)
  Receive Date: 20041001
  Receipt Date: 20040225
  Transmission Date: 20050328
  Serious: Yes (Life-Threatening, Hospitalization)
  Sender: FDA-Public Use
  Company Number: US-MERCK-0402USA01870

PATIENT
  Age: 50 Year
  Sex: Male
  Weight: 84 kg

DRUGS (8)
  1. VICODIN [Concomitant]
     Indication: BACK PAIN
     Route: 065
     Dates: start: 20030410
  2. XANAX [Concomitant]
     Indication: MUSCLE SPASMS
     Route: 065
     Dates: start: 20030418
  3. WELLBUTRIN [Concomitant]
     Indication: BLOOD PRESSURE
     Route: 065
  4. ZYBAN [Concomitant]
     Route: 065
  5. FLEXERIL [Concomitant]
     Indication: BACK PAIN
     Route: 065
     Dates: start: 20030410
  6. ARTHROTEC [Concomitant]
     Indication: BACK PAIN
     Route: 065
     Dates: start: 20030418
  7. VIOXX [Suspect]
     Indication: BACK INJURY
     Route: 048
     Dates: start: 20030410, end: 20030421
  8. VIOXX [Suspect]
     Indication: BACK PAIN
     Route: 048
     Dates: start: 20030410, end: 20030421

REACTIONS (8)
  - ACUTE MYOCARDIAL INFARCTION [None]
  - CARDIAC DISORDER [None]
  - CHEST PAIN [None]
  - CORONARY ARTERY DISEASE [None]
  - DRUG INEFFECTIVE [None]
  - DYSPNOEA [None]
  - FATIGUE [None]
  - INSOMNIA [None]
